FAERS Safety Report 9470913 (Version 1)
Quarter: 2013Q3

REPORT INFORMATION
  Report Type: Report from Study
  Country: ID (occurrence: ID)
  Receive Date: 20130822
  Receipt Date: 20130822
  Transmission Date: 20140515
  Serious: Yes (Death)
  Sender: FDA-Public Use
  Company Number: ID-ROCHE-1265287

PATIENT
  Age: 45 Year
  Sex: Male
  Weight: 52 kg

DRUGS (5)
  1. MABTHERA [Suspect]
     Indication: NON-HODGKIN^S LYMPHOMA
     Dosage: LAST CYCLE ON 17/APR/2013
     Route: 041
     Dates: start: 20130308
  2. CYCLOPHOSPHAMIDE [Concomitant]
     Indication: NON-HODGKIN^S LYMPHOMA
  3. PREDNISONE [Concomitant]
     Indication: NON-HODGKIN^S LYMPHOMA
  4. DOXORUBICIN [Concomitant]
     Indication: NON-HODGKIN^S LYMPHOMA
  5. VINCRISTIN [Concomitant]
     Indication: NON-HODGKIN^S LYMPHOMA

REACTIONS (1)
  - Death [Fatal]
